FAERS Safety Report 12569846 (Version 1)
Quarter: 2016Q3

REPORT INFORMATION
  Report Type: Spontaneous
  Country: US (occurrence: None)
  Receive Date: 20160718
  Receipt Date: 20160718
  Transmission Date: 20161109
  Serious: No
  Sender: FDA-Public Use
  Company Number: None

PATIENT
  Age: 29 Year
  Sex: Female

DRUGS (2)
  1. IBUPROFEN. [Concomitant]
     Active Substance: IBUPROFEN
  2. AURO-DRI [Suspect]
     Active Substance: ISOPROPYL ALCOHOL
     Indication: EAR DISORDER
     Dates: start: 20160717, end: 20160717

REACTIONS (1)
  - Ear discomfort [None]

NARRATIVE: CASE EVENT DATE: 20160717
